FAERS Safety Report 5374972-5 (Version None)
Quarter: 2007Q2

REPORT INFORMATION
  Report Type: 
  Country: None (occurrence: None)
  Receive Date: 20070629
  Receipt Date: 20070619
  Transmission Date: 20071010
  Serious: Yes (Hospitalization)
  Sender: FDA-Public Use
  Company Number: US-SANOFI-SYNTHELABO-A03200702418

PATIENT
  Sex: Female

DRUGS (10)
  1. ASPIRIN [Concomitant]
     Dosage: UNK
     Route: 065
  2. OXYBUTYNIN [Concomitant]
     Dosage: UNK
     Route: 065
  3. SUCRALFATE [Concomitant]
     Dosage: UNK
     Route: 065
  4. LEXAPRO [Concomitant]
     Dosage: UNK
     Route: 065
  5. ZANTAC [Concomitant]
     Dosage: UNK
     Route: 065
  6. METHADONE HCL [Concomitant]
     Dosage: UNK
     Route: 065
  7. NEURONTIN [Concomitant]
     Dosage: UNK
     Route: 065
  8. ZELNORM [Concomitant]
     Dosage: UNK
     Route: 065
  9. AMBIEN [Suspect]
     Indication: INSOMNIA
     Route: 048
     Dates: start: 19990101, end: 20061116
  10. AMBIEN [Suspect]
     Route: 048
     Dates: start: 20061116, end: 20070222

REACTIONS (12)
  - ABASIA [None]
  - ACTIVITIES OF DAILY LIVING IMPAIRED [None]
  - AMNESIA [None]
  - ASTHENIA [None]
  - BLOOD PRESSURE INCREASED [None]
  - CEREBROVASCULAR ACCIDENT [None]
  - CONTUSION [None]
  - EATING DISORDER [None]
  - FACIAL BONES FRACTURE [None]
  - INJURY [None]
  - SLEEP WALKING [None]
  - SPEECH DISORDER [None]
